FAERS Safety Report 7922596-5 (Version None)
Quarter: 2011Q4

REPORT INFORMATION
  Report Type: 
  Country: None (occurrence: None)
  Receive Date: 20111117
  Receipt Date: 20101129
  Transmission Date: 20120403
  Serious: No
  Sender: FDA-Public Use
  Company Number: US-ALLERGAN-1015320US

PATIENT
  Sex: Female

DRUGS (1)
  1. COMBIGAN [Suspect]
     Indication: PRODUCT USED FOR UNKNOWN INDICATION

REACTIONS (7)
  - WRONG DRUG ADMINISTERED [None]
  - EXCESSIVE EYE BLINKING [None]
  - FATIGUE [None]
  - VISUAL IMPAIRMENT [None]
  - OCULAR DISCOMFORT [None]
  - VISION BLURRED [None]
  - ABNORMAL SENSATION IN EYE [None]
